FAERS Safety Report 22026910 (Version 1)
Quarter: 2023Q1

REPORT INFORMATION
  Report Type: Spontaneous
  Country: US (occurrence: None)
  Receive Date: 20230223
  Receipt Date: 20230223
  Transmission Date: 20230417
  Serious: No
  Sender: FDA-Public Use
  Company Number: US-ROCHE-3203494

PATIENT
  Sex: Female

DRUGS (1)
  1. XOLAIR [Suspect]
     Active Substance: OMALIZUMAB
     Indication: Asthma
     Dosage: STRENGTH: 150 MG/ML, EVERY 4 WEEKS UNDER THE SKIN; ONGOING: YES
     Route: 058

REACTIONS (2)
  - Alopecia [Unknown]
  - Hair texture abnormal [Unknown]
